FAERS Safety Report 15859836 (Version 2)
Quarter: 2019Q1

REPORT INFORMATION
  Report Type: Spontaneous
  Country: DE (occurrence: DE)
  Receive Date: 20190123
  Receipt Date: 20190125
  Transmission Date: 20190417
  Serious: Yes (Death, Hospitalization)
  Sender: FDA-Public Use
  Company Number: DE-JNJFOC-20190121104

PATIENT
  Age: 69 Year
  Sex: Male
  Weight: 100 kg

DRUGS (5)
  1. COTRIM FORTE [Concomitant]
     Active Substance: SULFAMETHOXAZOLE\TRIMETHOPRIM
     Indication: PROPHYLAXIS
     Route: 048
  2. BISOPROLOL [Concomitant]
     Active Substance: BISOPROLOL
     Indication: HYPERTENSION
     Route: 048
  3. IBRUTINIB [Suspect]
     Active Substance: IBRUTINIB
     Indication: MANTLE CELL LYMPHOMA RECURRENT
     Route: 048
     Dates: start: 201612, end: 201806
  4. IBRUTINIB [Suspect]
     Active Substance: IBRUTINIB
     Indication: MANTLE CELL LYMPHOMA RECURRENT
     Route: 048
     Dates: start: 201806, end: 201810
  5. IBRUTINIB [Suspect]
     Active Substance: IBRUTINIB
     Indication: MANTLE CELL LYMPHOMA RECURRENT
     Route: 048
     Dates: start: 201810, end: 20181127

REACTIONS (3)
  - Hepatic failure [Fatal]
  - Hepatorenal syndrome [Fatal]
  - Hepatitis B reactivation [Fatal]

NARRATIVE: CASE EVENT DATE: 201811
